FAERS Safety Report 4863154-9 (Version None)
Quarter: 2005Q4

REPORT INFORMATION
  Report Type: 
  Country: None (occurrence: None)
  Receive Date: 20051201
  Receipt Date: 20050803
  Transmission Date: 20060501
  Serious: No
  Sender: FDA-Public Use
  Company Number: 2005-0008609

PATIENT
  Sex: Male

DRUGS (1)
  1. TRUVADA [Suspect]
     Indication: HIV INFECTION

REACTIONS (3)
  - AIDS DEMENTIA COMPLEX [None]
  - DRUG INEFFECTIVE [None]
  - ENCEPHALITIS VIRAL [None]
